FAERS Safety Report 16530467 (Version 1)
Quarter: 2019Q3

REPORT INFORMATION
  Report Type: Spontaneous
  Country: US (occurrence: US)
  Receive Date: 20190704
  Receipt Date: 20190704
  Transmission Date: 20191004
  Serious: Yes (Hospitalization, Other)
  Sender: FDA-Public Use
  Company Number: US-GLAXOSMITHKLINE-US2019118396

PATIENT
  Sex: Female

DRUGS (2)
  1. ADVAIR DISKUS [Suspect]
     Active Substance: FLUTICASONE PROPIONATE\SALMETEROL XINAFOATE
     Indication: ASTHMA
  2. ADVAIR DISKUS [Suspect]
     Active Substance: FLUTICASONE PROPIONATE\SALMETEROL XINAFOATE
     Indication: ANAPHYLACTIC REACTION
     Dosage: 1 PUFF(S), BID
     Route: 055
     Dates: start: 2000

REACTIONS (11)
  - Anaphylactic reaction [Recovered/Resolved]
  - Swelling face [Unknown]
  - Throat tightness [Unknown]
  - Product dose omission [Unknown]
  - Heart rate increased [Unknown]
  - Pruritus [Unknown]
  - Wrong technique in device usage process [Unknown]
  - Off label use [Unknown]
  - Ear swelling [Unknown]
  - Product use in unapproved indication [Unknown]
  - Therapeutic response unexpected [Unknown]
